FAERS Safety Report 10973342 (Version 1)
Quarter: 2015Q1

REPORT INFORMATION
  Report Type: Spontaneous
  Country: US (occurrence: None)
  Receive Date: 20150331
  Receipt Date: 20150331
  Transmission Date: 20150721
  Serious: Yes (Life-Threatening, Hospitalization, Disabling)
  Sender: FDA-Public Use
  Company Number: None

PATIENT
  Age: 64 Year
  Sex: Male
  Weight: 95.71 kg

DRUGS (7)
  1. XARELTO [Concomitant]
     Active Substance: RIVAROXABAN
  2. PRILOSEC [Concomitant]
     Active Substance: OMEPRAZOLE MAGNESIUM
  3. PERCOCET [Concomitant]
     Active Substance: ACETAMINOPHEN\OXYCODONE HYDROCHLORIDE
  4. XARELTO [Suspect]
     Active Substance: RIVAROXABAN
     Indication: ATRIAL FIBRILLATION
     Dosage: ONE
     Route: 048
     Dates: start: 20140108, end: 20150325
  5. MS CONTIN [Concomitant]
     Active Substance: MORPHINE SULFATE
  6. ANDROGEL [Concomitant]
     Active Substance: TESTOSTERONE
  7. LASIX [Concomitant]
     Active Substance: FUROSEMIDE

REACTIONS (3)
  - Wound haematoma [None]
  - Carpal tunnel syndrome [None]
  - Incision site pain [None]

NARRATIVE: CASE EVENT DATE: 20150325
